FAERS Safety Report 23017482 (Version 1)
Quarter: 2023Q4

REPORT INFORMATION
  Report Type: Spontaneous
  Country: US (occurrence: US)
  Receive Date: 20231003
  Receipt Date: 20231003
  Transmission Date: 20240110
  Serious: Yes (Death, Hospitalization)
  Sender: FDA-Public Use
  Company Number: US-ABBVIE-5430963

PATIENT
  Sex: Male

DRUGS (1)
  1. VENCLEXTA [Suspect]
     Active Substance: VENETOCLAX
     Indication: Acute lymphocytic leukaemia
     Dosage: 4 100MG TABLETS DAILY
     Route: 048

REACTIONS (3)
  - Acute lymphocytic leukaemia [Fatal]
  - Hospitalisation [Unknown]
  - Intentional product use issue [Unknown]
